FAERS Safety Report 15494206 (Version 1)
Quarter: 2018Q4

REPORT INFORMATION
  Report Type: Spontaneous
  Country: IE (occurrence: IE)
  Receive Date: 20181012
  Receipt Date: 20181012
  Transmission Date: 20190205
  Serious: Yes (Other)
  Sender: FDA-Public Use
  Company Number: IE-PFIZER INC-2018405558

PATIENT
  Age: 83 Year
  Sex: Male

DRUGS (1)
  1. SERTRALINE HCL [Suspect]
     Active Substance: SERTRALINE HYDROCHLORIDE
     Dosage: UNK
     Route: 065

REACTIONS (14)
  - Heart rate irregular [Unknown]
  - Dry mouth [Unknown]
  - Osteoarthritis [Unknown]
  - Breath odour [Unknown]
  - Weight increased [Unknown]
  - Chromaturia [Unknown]
  - Saliva discolouration [Unknown]
  - Nocturia [Unknown]
  - Thirst decreased [Unknown]
  - Back pain [Unknown]
  - Paraesthesia [Unknown]
  - Incorrect dose administered [Unknown]
  - Agitation [Unknown]
  - Wrong technique in product usage process [Unknown]
